FAERS Safety Report 25819132 (Version 1)
Quarter: 2025Q3

REPORT INFORMATION
  Report Type: Spontaneous
  Country: US (occurrence: None)
  Receive Date: 20250918
  Receipt Date: 20250918
  Transmission Date: 20251021
  Serious: Yes (Other)
  Sender: FDA-CTU
  Company Number: None

PATIENT
  Age: 64 Year
  Sex: Female
  Weight: 118.35 kg

DRUGS (4)
  1. REXULTI [Suspect]
     Active Substance: BREXPIPRAZOLE
     Dosage: FREQUENCY : AT BEDTIME;?
     Dates: start: 20250311, end: 20250909
  2. DESIPRAMINE [Concomitant]
     Active Substance: DESIPRAMINE
     Dates: start: 20200723, end: 20250918
  3. VENLAFAXINE HYDROCHLORIDE [Concomitant]
     Active Substance: VENLAFAXINE HYDROCHLORIDE
     Dates: start: 20250617, end: 20250918
  4. ROZEREM [Concomitant]
     Active Substance: RAMELTEON
     Dates: start: 20230720, end: 20250918

REACTIONS (3)
  - Nightmare [None]
  - Abnormal dreams [None]
  - Therapy cessation [None]

NARRATIVE: CASE EVENT DATE: 20250909
